APPROVED DRUG PRODUCT: VALSARTAN AND HYDROCHLOROTHIAZIDE
Active Ingredient: HYDROCHLOROTHIAZIDE; VALSARTAN
Strength: 12.5MG;80MG
Dosage Form/Route: TABLET;ORAL
Application: A078946 | Product #003 | TE Code: AB
Applicant: LUPIN LTD
Approved: Mar 21, 2013 | RLD: No | RS: No | Type: RX